FAERS Safety Report 5133277-8 (Version None)
Quarter: 2006Q4

REPORT INFORMATION
  Report Type: 
  Country: None (occurrence: None)
  Receive Date: 20060831
  Receipt Date: 20060724
  Transmission Date: 20070319
  Serious: No
  Sender: FDA-Public Use
  Company Number: 2006-BP-08488BP

PATIENT
  Age: 85 Year
  Sex: Female

DRUGS (3)
  1. SPIRIVA [Suspect]
     Dosage: 18 MCG (18 MCG,1 IN 1 D),IH
     Dates: start: 20060201
  2. THRYOID MEDICATION (SPECIFICS NOT REPORTED) [Concomitant]
  3. HIGH BLOOD PRESSURE MEDICATION (SPECIFICS NOT REPORTED) [Concomitant]

REACTIONS (4)
  - ARTHRALGIA [None]
  - DRY MOUTH [None]
  - MYALGIA [None]
  - VISION BLURRED [None]
